FAERS Safety Report 12518434 (Version 2)
Quarter: 2016Q3

REPORT INFORMATION
  Report Type: Report from Study
  Country: US (occurrence: US)
  Receive Date: 20160630
  Receipt Date: 20160804
  Transmission Date: 20161109
  Serious: Yes (Hospitalization)
  Sender: FDA-Public Use
  Company Number: US-SEATTLE GENETICS-2016SGN01009

PATIENT

DRUGS (14)
  1. NEBUPENT [Concomitant]
     Active Substance: PENTAMIDINE ISETHIONATE
  2. PROTONIX [Concomitant]
     Active Substance: PANTOPRAZOLE SODIUM
  3. MULTI VITAMIN [Concomitant]
     Active Substance: VITAMINS
  4. HYDROCODONE BITARTRATE AND ACETAMINOPHEN [Concomitant]
     Active Substance: ACETAMINOPHEN\HYDROCODONE BITARTRATE
  5. ZOVIRAX [Concomitant]
     Active Substance: ACYCLOVIR
  6. BRENTUXIMAB VEDOTIN [Suspect]
     Active Substance: BRENTUXIMAB VEDOTIN
     Indication: HODGKIN^S DISEASE
     Dosage: 1.8 MG/KG, Q21D
     Route: 042
     Dates: start: 20160527, end: 20160527
  7. COMPAZINE                          /00013304/ [Concomitant]
     Active Substance: PROCHLORPERAZINE MALEATE
  8. PENICILLIN V POTASSIUM. [Concomitant]
     Active Substance: PENICILLIN V POTASSIUM
  9. EVEROLIMUS [Suspect]
     Active Substance: EVEROLIMUS
     Indication: HODGKIN^S DISEASE
     Dosage: 5 MG, QOD
     Route: 048
     Dates: start: 20160527, end: 20160616
  10. NYSTATIN. [Concomitant]
     Active Substance: NYSTATIN
  11. VITAMIN D3 [Concomitant]
     Active Substance: CHOLECALCIFEROL
  12. FENTANYL. [Concomitant]
     Active Substance: FENTANYL
  13. TRANSDERM                          /00003201/ [Concomitant]
  14. ZOFRAN [Concomitant]
     Active Substance: ONDANSETRON HYDROCHLORIDE

REACTIONS (5)
  - Hepatic enzyme increased [Recovered/Resolved]
  - Cholecystitis acute [Recovered/Resolved]
  - Pyrexia [Recovered/Resolved]
  - Cholelithiasis [Recovered/Resolved]
  - Bile duct stone [Recovered/Resolved]

NARRATIVE: CASE EVENT DATE: 20160622
